FAERS Safety Report 16050981 (Version 3)
Quarter: 2019Q4

REPORT INFORMATION
  Report Type: Spontaneous
  Country: US (occurrence: US)
  Receive Date: 20190308
  Receipt Date: 20191101
  Transmission Date: 20200122
  Serious: Yes (Other)
  Sender: FDA-Public Use
  Company Number: US-ASTELLAS-2019US008002

PATIENT
  Age: 69 Year
  Sex: Female

DRUGS (3)
  1. INSULIN [Concomitant]
     Active Substance: INSULIN NOS
     Indication: PRODUCT USED FOR UNKNOWN INDICATION
     Dosage: UNK UNK, UNKNOWN FREQ.
     Route: 065
  2. SYNTHROID [Concomitant]
     Active Substance: LEVOTHYROXINE SODIUM
     Indication: PRODUCT USED FOR UNKNOWN INDICATION
     Dosage: UNK UNK, UNKNOWN FREQ.
     Route: 065
  3. VESICARE [Suspect]
     Active Substance: SOLIFENACIN SUCCINATE
     Indication: HYPERTONIC BLADDER
     Route: 048
     Dates: start: 20190222, end: 20190225

REACTIONS (12)
  - Pruritus [Unknown]
  - Pharyngeal erythema [Unknown]
  - Malaise [Unknown]
  - Lip swelling [Unknown]
  - Product dose omission [Unknown]
  - Erythema [Unknown]
  - Pharyngeal swelling [Unknown]
  - Blood glucose increased [Unknown]
  - Dizziness [Unknown]
  - Swelling face [Unknown]
  - Dry mouth [Unknown]
  - Inability to afford medication [Unknown]
